FAERS Safety Report 9467227 (Version 2)
Quarter: 2013Q3

REPORT INFORMATION
  Report Type: Spontaneous
  Country: US (occurrence: US)
  Receive Date: 20130821
  Receipt Date: 20130905
  Transmission Date: 20140515
  Serious: No
  Sender: FDA-Public Use
  Company Number: US-009507513-1308USA008633

PATIENT
  Sex: Female

DRUGS (3)
  1. DULERA [Suspect]
     Indication: ASTHMA
     Dosage: 2 PUFFS TWICE DAILY
     Route: 048
     Dates: start: 201111
  2. DILTIAZEM HYDROCHLORIDE [Concomitant]
  3. PROAIR (ALBUTEROL SULFATE) [Concomitant]
     Dosage: PROAIR INHALER

REACTIONS (3)
  - Dyspnoea [Unknown]
  - Product container issue [Unknown]
  - Incorrect dose administered [Unknown]
